FAERS Safety Report 9524755 (Version 1)
Quarter: 2013Q3

REPORT INFORMATION
  Report Type: Spontaneous
  Country: US (occurrence: None)
  Receive Date: 20130912
  Receipt Date: 20130912
  Transmission Date: 20140515
  Serious: Yes (Other)
  Sender: FDA-Public Use
  Company Number: None

PATIENT
  Age: 55 Year
  Sex: Female
  Weight: 55.34 kg

DRUGS (5)
  1. CITALOPRAM HBR [Suspect]
     Indication: ANXIETY
     Dosage: 1/2 PILL
     Route: 048
     Dates: start: 20121218, end: 20121228
  2. CITALOPRAM HBR [Suspect]
     Indication: DEPRESSION
     Dosage: 1/2 PILL
     Route: 048
     Dates: start: 20121218, end: 20121228
  3. CITALOPRAM HYDROBROMIDE [Suspect]
     Indication: ANXIETY
     Route: 048
     Dates: start: 20130727, end: 20130805
  4. CITALOPRAM HYDROBROMIDE [Suspect]
     Indication: DEPRESSION
     Route: 048
     Dates: start: 20130727, end: 20130805
  5. CELEXA [Concomitant]

REACTIONS (10)
  - Depression [None]
  - Disease recurrence [None]
  - Headache [None]
  - Abdominal pain upper [None]
  - Decreased interest [None]
  - Decreased appetite [None]
  - Insomnia [None]
  - Drug ineffective [None]
  - Product quality issue [None]
  - Product substitution issue [None]
